FAERS Safety Report 4590176-8 (Version None)
Quarter: 2005Q1

REPORT INFORMATION
  Report Type: 
  Country: None (occurrence: None)
  Receive Date: 20050217
  Receipt Date: 20050201
  Transmission Date: 20050727
  Serious: Yes (Hospitalization)
  Sender: FDA-Public Use
  Company Number: 173847

PATIENT
  Age: 40 Year
  Sex: Male

DRUGS (1)
  1. AVONEX [Suspect]
     Indication: MULTIPLE SCLEROSIS
     Dosage: 30 UG; QW; IM
     Route: 030
     Dates: start: 20010726, end: 20030401

REACTIONS (8)
  - BALANCE DISORDER [None]
  - CEREBRAL THROMBOSIS [None]
  - CONVULSION [None]
  - FALL [None]
  - FATIGUE [None]
  - MOOD ALTERED [None]
  - TRAUMATIC BRAIN INJURY [None]
  - WEIGHT DECREASED [None]
